FAERS Safety Report 4507071-2 (Version None)
Quarter: 2004Q4

REPORT INFORMATION
  Report Type: 
  Country: None (occurrence: None)
  Receive Date: 20041117
  Receipt Date: 20041108
  Transmission Date: 20050328
  Serious: Yes (Hospitalization)
  Sender: FDA-Public Use
  Company Number: 2004PK01916

PATIENT
  Age: 84 Year
  Sex: Female
  Weight: 37 kg

DRUGS (9)
  1. NEXIUM [Suspect]
     Dosage: 20 MG DAILY PO
     Route: 048
     Dates: start: 20040221
  2. ANAFRANIL [Suspect]
     Dosage: 150 MG DAILY PO
     Route: 048
     Dates: start: 20040415, end: 20040505
  3. ANAFRANIL [Suspect]
     Dosage: 125 MG DAILY PO
     Route: 048
     Dates: start: 20040505, end: 20040506
  4. ANAFRANIL [Suspect]
     Dosage: 100 MG DAILY PO
     Route: 048
     Dates: start: 20040507
  5. AKINETON [Suspect]
     Dosage: 2 MG DAILY PO
     Route: 048
     Dates: start: 20040430, end: 20040502
  6. AKINETON [Suspect]
     Dosage: 4 MG DAILY PO
     Route: 048
     Dates: start: 20040503, end: 20040506
  7. SEROQUEL [Concomitant]
  8. HALDOL [Concomitant]
  9. OXAZEPAM [Concomitant]

REACTIONS (9)
  - DELIRIUM [None]
  - DISORIENTATION [None]
  - DRUG INTERACTION [None]
  - EXTRAPYRAMIDAL DISORDER [None]
  - FUMBLING [None]
  - GAIT DISTURBANCE [None]
  - HALLUCINATION, VISUAL [None]
  - RESTLESSNESS [None]
  - SLEEP DISORDER [None]
